FAERS Safety Report 7108838-7 (Version None)
Quarter: 2010Q4

REPORT INFORMATION
  Report Type: 
  Country: None (occurrence: None)
  Receive Date: 20101117
  Receipt Date: 20101105
  Transmission Date: 20110411
  Serious: Yes (Other)
  Sender: FDA-Public Use
  Company Number: US-CELGENEUS-163-21880-10110979

PATIENT
  Sex: Female

DRUGS (18)
  1. REVLIMID [Suspect]
     Indication: MULTIPLE MYELOMA
     Route: 048
     Dates: start: 20100201
  2. REVLIMID [Suspect]
     Route: 048
     Dates: start: 20100301
  3. REVLIMID [Suspect]
     Route: 048
     Dates: start: 20100901
  4. NEURONTIN [Concomitant]
     Route: 065
  5. SUCRALFATE [Concomitant]
     Route: 065
  6. ACYCLOVIR SODIUM [Concomitant]
     Route: 065
  7. PRILOSEC [Concomitant]
     Route: 065
  8. OXYCODONE HCL [Concomitant]
     Route: 065
  9. CLARITIN [Concomitant]
     Route: 065
  10. HYDROCORT [Concomitant]
     Route: 065
  11. TYLENOL 8 HR [Concomitant]
     Route: 065
  12. DAPSONE [Concomitant]
     Route: 065
  13. MINOCYCLINE HCL [Concomitant]
     Route: 065
  14. SLOW IRON [Concomitant]
     Route: 065
  15. LEXAPRO [Concomitant]
     Route: 065
  16. WARFARIN [Concomitant]
     Route: 065
  17. WARFARIN [Concomitant]
     Route: 065
  18. OXYGEN [Concomitant]
     Route: 055

REACTIONS (7)
  - ASTHENIA [None]
  - DYSPNOEA [None]
  - FATIGUE [None]
  - LUNG INFECTION [None]
  - OEDEMA PERIPHERAL [None]
  - PULMONARY OEDEMA [None]
  - RENAL DISORDER [None]
